FAERS Safety Report 10802638 (Version 1)
Quarter: 2015Q1

REPORT INFORMATION
  Report Type: Spontaneous
  Country: US (occurrence: US)
  Receive Date: 20150217
  Receipt Date: 20150217
  Transmission Date: 20150721
  Serious: No
  Sender: FDA-Public Use
  Company Number: US-BRACCO-011246

PATIENT
  Age: 72 Year
  Sex: Female

DRUGS (1)
  1. ISOVUE 370 [Suspect]
     Active Substance: IOPAMIDOL
     Indication: COMPUTERISED TOMOGRAM
     Dosage: FLOW RATE 2 ML/SECOND
     Route: 041
     Dates: start: 20140822, end: 20140822

REACTIONS (5)
  - Nausea [Unknown]
  - Flushing [Unknown]
  - Dizziness [Unknown]
  - Chills [Unknown]
  - Fatigue [Unknown]

NARRATIVE: CASE EVENT DATE: 20140822
